FAERS Safety Report 7150978-0 (Version None)
Quarter: 2010Q4

REPORT INFORMATION
  Report Type: 
  Country: None (occurrence: None)
  Receive Date: 20101210
  Receipt Date: 20101203
  Transmission Date: 20110411
  Serious: Yes (Other)
  Sender: FDA-Public Use
  Company Number: A0898720A

PATIENT
  Sex: Female
  Weight: 56 kg

DRUGS (4)
  1. WELLBUTRIN XL [Suspect]
     Indication: DEPRESSION
     Dosage: 300MG IN THE MORNING
     Route: 065
     Dates: start: 20101020
  2. RISPERIDONE [Concomitant]
     Dosage: 2MG AT NIGHT
     Dates: start: 20100601
  3. AMITRIPTYLINE [Concomitant]
     Dosage: 25MG AT NIGHT
     Dates: start: 20060101
  4. VERAPAMIL [Concomitant]
     Dosage: 80MG THREE TIMES PER DAY
     Dates: start: 20080101

REACTIONS (3)
  - NAUSEA [None]
  - NEOPLASM [None]
  - VOMITING [None]
